FAERS Safety Report 6546309-7 (Version None)
Quarter: 2010Q1

REPORT INFORMATION
  Report Type: 
  Country: None (occurrence: None)
  Receive Date: 20100122
  Receipt Date: 20100119
  Transmission Date: 20100710
  Serious: Yes (Other)
  Sender: FDA-Public Use
  Company Number: US-B.I. PHARMACEUTICALS,INC./RIDGEFIELD-2010-BP-00717BP

PATIENT
  Sex: Male

DRUGS (8)
  1. SPIRIVA [Suspect]
     Indication: CHRONIC OBSTRUCTIVE PULMONARY DISEASE
     Dosage: 18 MCG
     Route: 055
     Dates: start: 20100109
  2. ALBUTEROL [Concomitant]
     Indication: CHRONIC OBSTRUCTIVE PULMONARY DISEASE
  3. LISINOPRIL [Concomitant]
     Indication: HYPERTENSION
     Dosage: 5 MG
  4. COREG [Concomitant]
     Indication: HYPERTENSION
  5. LASIX [Concomitant]
  6. POTASSIUM [Concomitant]
     Indication: MINERAL SUPPLEMENTATION
  7. CENTRUM [Concomitant]
     Indication: SUPPLEMENTATION THERAPY
  8. HYDROCODONE [Concomitant]
     Indication: ARTHRALGIA

REACTIONS (2)
  - BLOOD PRESSURE FLUCTUATION [None]
  - LUNG NEOPLASM MALIGNANT [None]
